FAERS Safety Report 5713611-8 (Version None)
Quarter: 2008Q2

REPORT INFORMATION
  Report Type: 
  Country: None (occurrence: None)
  Receive Date: 20080422
  Receipt Date: 20080422
  Transmission Date: 20081010
  Serious: Yes (Hospitalization)
  Sender: FDA-Public Use
  Company Number: US-ABBOTT-08P-163-0446987-00

PATIENT
  Age: 10 Year
  Sex: Female
  Weight: 20 kg

DRUGS (3)
  1. LOPINAVIR AND RITONAVIR [Suspect]
     Indication: ACQUIRED IMMUNODEFICIENCY SYNDROME
     Dosage: NOT REPORTED
  2. DIDANOSINE [Suspect]
     Indication: ACQUIRED IMMUNODEFICIENCY SYNDROME
     Dosage: NOT REPORTED
  3. TENOFOVIR DISOPROXIL FUMARATE [Suspect]
     Indication: ACQUIRED IMMUNODEFICIENCY SYNDROME
     Dosage: NOT REPORTED

REACTIONS (1)
  - NEPHROPATHY TOXIC [None]
